FAERS Safety Report 14551636 (Version 1)
Quarter: 2018Q1

REPORT INFORMATION
  Report Type: Spontaneous
  Country: ES (occurrence: ES)
  Receive Date: 20180220
  Receipt Date: 20180220
  Transmission Date: 20180509
  Serious: Yes (Other)
  Sender: FDA-Public Use
  Company Number: ES-MERCK KGAA-2042284

PATIENT
  Sex: Female

DRUGS (12)
  1. SEPTRIN (SULFAMETHOXAZOLE\TRIMETHOPRIM) [Suspect]
     Active Substance: SULFAMETHOXAZOLE\TRIMETHOPRIM
  2. ADVAGRAF [Suspect]
     Active Substance: TACROLIMUS
  3. NYSTATIN. [Suspect]
     Active Substance: NYSTATIN
     Dates: end: 20180108
  4. CERTICAN [Suspect]
     Active Substance: EVEROLIMUS
     Route: 048
  5. ADVAGRAF [Suspect]
     Active Substance: TACROLIMUS
  6. NOVOTHYROX [Suspect]
     Active Substance: LEVOTHYROXINE SODIUM
     Indication: PRODUCT USED FOR UNKNOWN INDICATION
  7. PREDNISONE. [Suspect]
     Active Substance: PREDNISONE
  8. CERTICAN [Suspect]
     Active Substance: EVEROLIMUS
     Route: 048
  9. RANITIDINE. [Suspect]
     Active Substance: RANITIDINE
  10. CERTICAN [Suspect]
     Active Substance: EVEROLIMUS
     Route: 048
  11. ADALAT [Suspect]
     Active Substance: NIFEDIPINE
  12. CEFUROXIME. [Suspect]
     Active Substance: CEFUROXIME
     Dates: end: 20171226

REACTIONS (3)
  - Toxic skin eruption [Unknown]
  - Cheilitis [Unknown]
  - Inflammation [Unknown]

NARRATIVE: CASE EVENT DATE: 20180106
